FAERS Safety Report 6613883-1 (Version None)
Quarter: 2010Q1

REPORT INFORMATION
  Report Type: 
  Country: None (occurrence: None)
  Receive Date: 20100304
  Receipt Date: 20100301
  Transmission Date: 20100710
  Serious: Yes (Hospitalization)
  Sender: FDA-Public Use
  Company Number: A0847624A

PATIENT
  Age: 61 Year
  Sex: Male
  Weight: 113.6 kg

DRUGS (1)
  1. AVANDIA [Suspect]
     Dosage: 4MG PER DAY
     Route: 048
     Dates: end: 20080101

REACTIONS (4)
  - CORONARY ARTERY OCCLUSION [None]
  - PULMONARY FUNCTION TEST DECREASED [None]
  - RENAL FAILURE [None]
  - VISION BLURRED [None]
